FAERS Safety Report 9405700 (Version 1)
Quarter: 2013Q3

REPORT INFORMATION
  Report Type: Spontaneous
  Country: AU (occurrence: AU)
  Receive Date: 20130717
  Receipt Date: 20130717
  Transmission Date: 20140515
  Serious: Yes (Hospitalization)
  Sender: FDA-Public Use
  Company Number: AU-009507513-1307AUS005072

PATIENT
  Age: 54 Year
  Sex: Male
  Weight: 92 kg

DRUGS (1)
  1. PEG-INTRON [Suspect]
     Dosage: 150 MICROGRAM, QW
     Route: 058
     Dates: start: 20130614, end: 20130615

REACTIONS (3)
  - Arthralgia [Recovering/Resolving]
  - Vomiting [Recovering/Resolving]
  - Headache [Recovering/Resolving]
